FAERS Safety Report 17299965 (Version 1)
Quarter: 2020Q1

REPORT INFORMATION
  Report Type: Spontaneous
  Country: US (occurrence: US)
  Receive Date: 20200103
  Receipt Date: 20200103
  Transmission Date: 20200409
  Serious: Yes (Hospitalization)
  Sender: FDA-Public Use
  Company Number: None

PATIENT
  Age: 40 Year
  Sex: Male
  Weight: 177 kg

DRUGS (3)
  1. IFOSFAMIDE. [Suspect]
     Active Substance: IFOSFAMIDE
     Dates: end: 20191206
  2. TAXOL [Suspect]
     Active Substance: PACLITAXEL
     Dates: end: 20191206
  3. CISPLATIN. [Suspect]
     Active Substance: CISPLATIN
     Dates: end: 20191206

REACTIONS (3)
  - Scar excision [None]
  - Wound evisceration [None]
  - Cough [None]

NARRATIVE: CASE EVENT DATE: 20191230
